FAERS Safety Report 17228778 (Version 2)
Quarter: 2020Q1

REPORT INFORMATION
  Report Type: Spontaneous
  Country: JP (occurrence: JP)
  Receive Date: 20200103
  Receipt Date: 20200213
  Transmission Date: 20200409
  Serious: Yes (Other)
  Sender: FDA-Public Use
  Company Number: JP-PFIZER INC-2019525151

PATIENT
  Age: 81 Year
  Sex: Male
  Weight: 45 kg

DRUGS (23)
  1. LYRICA [Suspect]
     Active Substance: PREGABALIN
     Indication: BACK PAIN
     Dosage: 25 MG, 1X/DAY, BEFORE BEDTIME
     Route: 048
     Dates: start: 20190620, end: 20190625
  2. LYRICA [Suspect]
     Active Substance: PREGABALIN
     Dosage: 75 MG, 2X/DAY, MORNING AND BEFORE BEDTIME
     Route: 048
     Dates: start: 20190703, end: 20190710
  3. VANCOMYCIN [Suspect]
     Active Substance: VANCOMYCIN
     Dosage: UNK
     Dates: end: 20191212
  4. CEFAZOLIN [CEFAZOLIN SODIUM] [Suspect]
     Active Substance: CEFAZOLIN SODIUM
     Indication: SPLENIC ABSCESS
     Dosage: UNK
     Dates: start: 20190806, end: 20190813
  5. CALONAL [Concomitant]
     Active Substance: ACETAMINOPHEN
     Indication: BACK PAIN
     Dosage: 1 DF, 4X/DAY (AFTER EACH MEAL AND BEFORE BEDTIME)
     Dates: start: 20190605
  6. CELECOX [Suspect]
     Active Substance: CELECOXIB
     Indication: LUMBAR SPINAL STENOSIS
     Dosage: 100 MG, 2X/DAY, AFTER BREAKFAST AND AFTER SUPPER
     Dates: start: 20191103
  7. WARFARIN [Concomitant]
     Active Substance: WARFARIN
     Indication: THROMBOSIS
     Dosage: 1.5 MG, 1X/DAY AFTER BREAKFAST
  8. BEPOTASTINE BESILATE [Concomitant]
     Active Substance: BEPOTASTINE BESYLATE
     Indication: PRURITUS
     Dosage: 10 MG, 2X/DAY, AFTER BREAKFAST AND SUPPER
     Dates: start: 20191107
  9. BEPOTASTINE BESILATE [Concomitant]
     Active Substance: BEPOTASTINE BESYLATE
     Indication: HYPERSENSITIVITY VASCULITIS
  10. SILODOSIN. [Suspect]
     Active Substance: SILODOSIN
     Indication: DYSURIA
     Dosage: 4 MG, 2X/DAY, AFTER BREAKFAST AND AFTER SUPPER
  11. FOLIAMIN [Concomitant]
     Active Substance: FOLIC ACID
     Indication: FOLATE DEFICIENCY
     Dosage: 5 MG, 3X/DAY, AFTER EACH MEAL
     Dates: start: 20190709
  12. AVOLVE [Concomitant]
     Active Substance: DUTASTERIDE
     Indication: DYSURIA
     Dosage: 0.5 MG, 1X/DAY, AFTER BREAKFAST
  13. BILANOA [Concomitant]
     Active Substance: BILASTINE
     Indication: HYPERSENSITIVITY VASCULITIS
  14. MIYA-BM [Concomitant]
     Active Substance: CLOSTRIDIUM BUTYRICUM SPORES STRAIN M-55
     Indication: DIARRHOEA
     Dosage: 1 G, 3X/DAY, AFTER EACH MEAL
     Dates: start: 20190605
  15. VANCOMYCIN [Suspect]
     Active Substance: VANCOMYCIN
     Indication: INTERVERTEBRAL DISCITIS
     Dosage: UNK
     Dates: start: 20190927, end: 20191101
  16. POLAPREZINC [Concomitant]
     Active Substance: POLAPREZINC
     Indication: GASTRIC ULCER
     Dosage: 75 MG, 2X/DAY, AFTER BREAKFAST AND BEFORE BEDTIME
     Dates: start: 20190709
  17. BILANOA [Concomitant]
     Active Substance: BILASTINE
     Indication: PRURITUS
     Dosage: 20 MG, 1X/DAY, WAKE UP TIME AND FASTING TIME FOR 30 DAYS
  18. LYRICA [Suspect]
     Active Substance: PREGABALIN
     Dosage: 25 MG, 2X/DAY, MORNING AND BEFORE BEDTIME
     Route: 048
     Dates: start: 20191120, end: 20191123
  19. NEUROVITAN [Concomitant]
     Active Substance: VITAMINS
     Indication: VITAMIN B1 DEFICIENCY
     Dosage: 1 DF, 3X/DAY, AFTER EACH MEAL
     Dates: start: 20190709
  20. LYRICA [Suspect]
     Active Substance: PREGABALIN
     Dosage: 75 MG, 1X/DAY, BEFORE BEDTIME
     Route: 048
     Dates: start: 20190626, end: 20190702
  21. LYRICA [Suspect]
     Active Substance: PREGABALIN
     Dosage: 50 MG, 2X/DAY, MORNING AND BEFORE BEDTIME
     Route: 048
     Dates: start: 20190711, end: 20191119
  22. LYRICA [Suspect]
     Active Substance: PREGABALIN
     Dosage: 25 MG, 1X/DAY, BEFORE BEDTIME
     Route: 048
     Dates: start: 20191124, end: 20191127
  23. TOVIAZ [Suspect]
     Active Substance: FESOTERODINE FUMARATE
     Indication: HYPERTONIC BLADDER
     Dosage: 4 MG, 1X/DAY, AFTER SUPPER

REACTIONS (35)
  - Albumin globulin ratio decreased [Unknown]
  - Red blood cells urine positive [Unknown]
  - Neutrophil count decreased [Unknown]
  - Protein urine present [Unknown]
  - Blood urine present [Unknown]
  - Mean cell haemoglobin increased [Unknown]
  - Aspartate aminotransferase increased [Unknown]
  - Blood glucose increased [Unknown]
  - Blood lactate dehydrogenase increased [Unknown]
  - Blood sodium decreased [Unknown]
  - Back pain [Recovering/Resolving]
  - Eosinophil count increased [Unknown]
  - Haemoglobin decreased [Unknown]
  - Mean cell volume increased [Unknown]
  - Red blood cell count decreased [Unknown]
  - Neutrophil percentage decreased [Unknown]
  - Bacterial test positive [Unknown]
  - Mean platelet volume increased [Unknown]
  - Red cell distribution width increased [Unknown]
  - Lymphocyte percentage decreased [Unknown]
  - Hepatic function abnormal [Unknown]
  - Dizziness [Recovered/Resolved]
  - Eosinophil percentage increased [Unknown]
  - Urine abnormality [Unknown]
  - White blood cell count decreased [Unknown]
  - Alanine aminotransferase increased [Unknown]
  - C-reactive protein increased [Unknown]
  - VIth nerve paralysis [Not Recovered/Not Resolved]
  - Blood creatine phosphokinase decreased [Unknown]
  - Haematocrit decreased [Unknown]
  - Platelet count decreased [Unknown]
  - Protein total decreased [Unknown]
  - Blood albumin decreased [Unknown]
  - Monocyte percentage increased [Unknown]
  - White blood cells urine positive [Unknown]

NARRATIVE: CASE EVENT DATE: 2019
